FAERS Safety Report 20865876 (Version 1)
Quarter: 2022Q2

REPORT INFORMATION
  Report Type: Spontaneous
  Country: US (occurrence: None)
  Receive Date: 20220523
  Receipt Date: 20220523
  Transmission Date: 20220721
  Serious: Yes (unspecified)
  Sender: FDA-Public Use
  Company Number: None

PATIENT
  Age: 47 Year
  Sex: Male

DRUGS (1)
  1. MELOXICAM [Suspect]
     Active Substance: MELOXICAM
     Dosage: FREQUENCY : DAILY;?
     Route: 048
     Dates: start: 20211127, end: 20211210

REACTIONS (5)
  - Dyspnoea [None]
  - Fall [None]
  - Head injury [None]
  - Gastric haemorrhage [None]
  - Hypotension [None]

NARRATIVE: CASE EVENT DATE: 20211222
